FAERS Safety Report 20731490 (Version 2)
Quarter: 2022Q2

REPORT INFORMATION
  Report Type: Spontaneous
  Country: US (occurrence: US)
  Receive Date: 20220420
  Receipt Date: 20220425
  Transmission Date: 20220720
  Serious: No
  Sender: FDA-Public Use
  Company Number: US-SANOFI-01061739

PATIENT
  Age: 77 Year
  Sex: Female

DRUGS (2)
  1. LANTUS SOLOSTAR [Suspect]
     Active Substance: INSULIN GLARGINE
     Dosage: 25 UNITS, DAILY
  2. LANTUS SOLOSTAR [Suspect]
     Active Substance: INSULIN GLARGINE
     Dosage: NOW INJECTS ANYWHERE FROM 5 TO 6 TO 8 UNITS AT A TIME,INJECTS LANTUS SOLOSTAR 1 TO 3 TIMES PER DAY (

REACTIONS (4)
  - Impaired healing [Unknown]
  - Blood glucose fluctuation [Recovering/Resolving]
  - Product storage error [Unknown]
  - Intentional product misuse [Unknown]
